FAERS Safety Report 9259880 (Version 2)
Quarter: 2014Q1

REPORT INFORMATION
  Report Type: Spontaneous
  Country: US (occurrence: US)
  Receive Date: 20130429
  Receipt Date: 20140103
  Transmission Date: 20141002
  Serious: Yes (Disabling)
  Sender: FDA-Public Use
  Company Number: US-ASTRAZENECA-2013SE27544

PATIENT
  Sex: Female
  Weight: 66.2 kg

DRUGS (15)
  1. NEXIUM [Suspect]
     Indication: GASTROOESOPHAGEAL REFLUX DISEASE
     Route: 048
     Dates: start: 20020322, end: 20041101
  2. NEXIUM [Suspect]
     Indication: GASTROOESOPHAGEAL REFLUX DISEASE
     Route: 048
     Dates: start: 20020322
  3. PREVACID [Concomitant]
     Indication: GASTRIC DISORDER
     Dates: start: 1996, end: 199703
  4. PREVACID [Concomitant]
     Indication: GASTRIC DISORDER
     Dates: start: 199710, end: 199806
  5. PREVACID [Concomitant]
     Indication: GASTRIC DISORDER
     Dates: start: 199909, end: 199912
  6. PREVACID [Concomitant]
     Indication: GASTRIC DISORDER
     Dates: start: 200001, end: 200005
  7. PREVACID [Concomitant]
     Indication: GASTRIC DISORDER
     Dates: start: 200008, end: 200012
  8. PREVACID [Concomitant]
     Indication: GASTRIC DISORDER
     Dates: start: 200102, end: 200105
  9. PREVACID [Concomitant]
     Indication: GASTRIC DISORDER
     Dates: start: 200107, end: 200109
  10. PREVACID [Concomitant]
     Indication: GASTRIC DISORDER
     Dates: start: 200201
  11. ZANTAC [Concomitant]
  12. TAGAMET [Concomitant]
     Indication: GASTRIC DISORDER
  13. PEPCID [Concomitant]
     Dosage: TWICE A DAY
     Dates: start: 2005, end: 2009
  14. TUMS [Concomitant]
     Dosage: 6 X A DAY
     Dates: start: 1992
  15. FOSOMAX [Concomitant]
     Indication: BONE DENSITY DECREASED
     Dates: start: 2003, end: 2005

REACTIONS (10)
  - Spinal fracture [Unknown]
  - Foot fracture [Unknown]
  - Osteoporosis [Unknown]
  - Bone density decreased [Unknown]
  - Road traffic accident [Unknown]
  - Bronchitis [Unknown]
  - Arthritis [Unknown]
  - Anxiety [Unknown]
  - Asthenia [Unknown]
  - Depression [Unknown]
